FAERS Safety Report 24753015 (Version 1)
Quarter: 2024Q4

REPORT INFORMATION
  Report Type: Spontaneous
  Country: US (occurrence: US)
  Receive Date: 20241219
  Receipt Date: 20241219
  Transmission Date: 20250114
  Serious: No
  Sender: BAYER HEALTHCARE LLC
  Company Number: US-BAYER-2024A179654

PATIENT
  Age: 37 Year
  Sex: Female

DRUGS (1)
  1. CLARITIN [Suspect]
     Active Substance: LORATADINE
     Indication: Product used for unknown indication

REACTIONS (2)
  - Pruritus [Recovered/Resolved]
  - Urticaria [Recovered/Resolved]

NARRATIVE: CASE EVENT DATE: 20241014
